FAERS Safety Report 7671440-2 (Version None)
Quarter: 2011Q3

REPORT INFORMATION
  Report Type: 
  Country: None (occurrence: None)
  Receive Date: 20110809
  Receipt Date: 20110804
  Transmission Date: 20111222
  Serious: Yes (Hospitalization)
  Sender: FDA-Public Use
  Company Number: FR-BAYER-2011-069136

PATIENT
  Age: 85 Year
  Sex: Female

DRUGS (2)
  1. TIENAM [Suspect]
     Indication: LUNG INFECTION PSEUDOMONAL
     Dosage: 250 MG, QD
     Route: 042
     Dates: start: 20110620, end: 20110714
  2. CIPROFLOXACIN [Suspect]
     Indication: LUNG INFECTION PSEUDOMONAL
     Dosage: 250 MG, QD
     Route: 042
     Dates: start: 20110620, end: 20110714

REACTIONS (2)
  - RENAL FAILURE ACUTE [None]
  - HYPERKALAEMIA [None]
